FAERS Safety Report 7042212-7 (Version None)
Quarter: 2010Q4

REPORT INFORMATION
  Report Type: 
  Country: None (occurrence: None)
  Receive Date: 20101008
  Receipt Date: 20101004
  Transmission Date: 20110411
  Serious: Yes (Other)
  Sender: FDA-Public Use
  Company Number: 2010AT000017

PATIENT
  Age: 19 Year
  Sex: Female

DRUGS (2)
  1. SEMPREX-D [Suspect]
     Indication: NASOPHARYNGITIS
     Dosage: 60 MG; PO
     Route: 048
  2. PREDNISONE [Concomitant]

REACTIONS (6)
  - BLOOD PRESSURE INCREASED [None]
  - LEUKOARAIOSIS [None]
  - NUCLEAR MAGNETIC RESONANCE IMAGING BRAIN ABNORMAL [None]
  - REVERSIBLE POSTERIOR LEUKOENCEPHALOPATHY SYNDROME [None]
  - VOMITING [None]
  - WHITE BLOOD CELL COUNT INCREASED [None]
